FAERS Safety Report 16172205 (Version 2)
Quarter: 2019Q2

REPORT INFORMATION
  Report Type: Spontaneous
  Country: US (occurrence: US)
  Receive Date: 20190409
  Receipt Date: 20190509
  Transmission Date: 20190711
  Serious: No
  Sender: FDA-Public Use
  Company Number: US-GLAXOSMITHKLINE-US2019060457

PATIENT
  Age: 66 Year
  Sex: Female

DRUGS (2)
  1. NICODERM CQ [Suspect]
     Active Substance: NICOTINE
     Indication: SMOKING CESSATION THERAPY
     Dosage: 14 MG, UNK
     Dates: start: 20190320, end: 20190403
  2. NICODERM CQ [Suspect]
     Active Substance: NICOTINE
     Dosage: 14 UNK, UNK
     Dates: start: 20190320, end: 20190403

REACTIONS (4)
  - Product complaint [Unknown]
  - Nasal congestion [Unknown]
  - Urine odour abnormal [Unknown]
  - Skin odour abnormal [Unknown]

NARRATIVE: CASE EVENT DATE: 20190402
